FAERS Safety Report 19096405 (Version 1)
Quarter: 2021Q2

REPORT INFORMATION
  Report Type: Spontaneous
  Country: FR (occurrence: FR)
  Receive Date: 20210406
  Receipt Date: 20210406
  Transmission Date: 20210717
  Serious: Yes (Hospitalization)
  Sender: FDA-Public Use
  Company Number: FR-ACCORD-222014

PATIENT
  Age: 97 Year
  Sex: Male

DRUGS (6)
  1. JANUMET [Concomitant]
     Active Substance: METFORMIN HYDROCHLORIDE\SITAGLIPTIN PHOSPHATE
     Route: 048
     Dates: start: 20210208, end: 20210209
  2. LEVOTHYROX [Concomitant]
     Active Substance: LEVOTHYROXINE
     Dosage: 75 MICROGRAMS, SCORED TABLET
     Route: 048
     Dates: start: 20210208, end: 20210210
  3. RAMIPRIL. [Suspect]
     Active Substance: RAMIPRIL
     Route: 048
     Dates: start: 20210209, end: 20210209
  4. MIRTAZAPINE. [Suspect]
     Active Substance: MIRTAZAPINE
     Route: 048
     Dates: start: 20210208, end: 20210209
  5. SERESTA [Suspect]
     Active Substance: OXAZEPAM
     Dosage: 50 MG, SCORED TABLET
     Route: 048
     Dates: start: 20210209, end: 20210209
  6. LAMOTRIGINE. [Concomitant]
     Active Substance: LAMOTRIGINE
     Indication: EPILEPSY
     Dosage: 50 MG, TABLET?NOT ADMINISTERED
     Route: 048
     Dates: end: 20210208

REACTIONS (4)
  - Hypotension [Recovered/Resolved]
  - Myoclonus [Recovered/Resolved]
  - Coma [Recovered/Resolved]
  - Wrong patient received product [Recovered/Resolved]

NARRATIVE: CASE EVENT DATE: 20210208
